FAERS Safety Report 7204684-4 (Version None)
Quarter: 2010Q4

REPORT INFORMATION
  Report Type: 
  Country: None (occurrence: None)
  Receive Date: 20101230
  Receipt Date: 20101217
  Transmission Date: 20110411
  Serious: Yes (Other)
  Sender: FDA-Public Use
  Company Number: US-JNJFOC-20101204768

PATIENT
  Age: 76 Year
  Sex: Male
  Weight: 92.08 kg

DRUGS (4)
  1. EXTRA STRENGTH TYLENOL PM [Suspect]
     Indication: INSOMNIA
     Route: 048
  2. LIPITOR [Concomitant]
     Indication: BLOOD CHOLESTEROL INCREASED
  3. UNSPECIFIED ANTI-HYPERTENSIVE [Concomitant]
     Indication: HYPERTENSION
  4. DIURETIC [Concomitant]

REACTIONS (2)
  - PRODUCT LABEL ISSUE [None]
  - RENAL FAILURE [None]
